FAERS Safety Report 5448477-7 (Version None)
Quarter: 2007Q3

REPORT INFORMATION
  Report Type: 
  Country: None (occurrence: None)
  Receive Date: 20070905
  Receipt Date: 20070824
  Transmission Date: 20080115
  Serious: Yes (Hospitalization)
  Sender: FDA-Public Use
  Company Number: GXKR2007US07347

PATIENT
  Age: 69 Year
  Sex: Male

DRUGS (5)
  1. SERTRALINE [Suspect]
     Dosage: 25 MG, QD, 150 MG, QD
  2. RISPERIDONE [Suspect]
     Dosage: 0.5 MG, BID 3 MG, QD
  3. TRAZODONE HCL [Suspect]
     Indication: INSOMNIA
     Dosage: 50 MG, QN
  4. VENLAFAXINE HCL [Concomitant]
  5. METOPROLOL SUCCINATE [Concomitant]

REACTIONS (2)
  - DRUG INTERACTION [None]
  - SEROTONIN SYNDROME [None]
